FAERS Safety Report 9844513 (Version 2)
Quarter: 2014Q1

REPORT INFORMATION
  Report Type: Spontaneous
  Country: NO (occurrence: None)
  Receive Date: 20140123
  Receipt Date: 20140204
  Transmission Date: 20141002
  Serious: Yes (Hospitalization, Other)
  Sender: FDA-Public Use
  Company Number: 2014NO0019

PATIENT
  Age: 24 Year
  Sex: Male

DRUGS (3)
  1. KINERET [Suspect]
     Indication: STILL^S DISEASE ADULT ONSET
     Dosage: 200 MG (100 MG, 2 IN 1 D)
     Dates: start: 20140103, end: 20140107
  2. KINERET [Suspect]
     Indication: JUVENILE IDIOPATHIC ARTHRITIS
     Dosage: 200 MG (100 MG, 2 IN 1 D)
     Dates: start: 20140103, end: 20140107
  3. PREDNISOLONE (PREDNISOLONE) (PREDNISOLONE) [Concomitant]

REACTIONS (4)
  - Acute hepatic failure [None]
  - Hepatic necrosis [None]
  - General physical health deterioration [None]
  - No therapeutic response [None]
